FAERS Safety Report 23845693 (Version 1)
Quarter: 2024Q2

REPORT INFORMATION
  Report Type: Report from Study
  Country: DE (occurrence: DE)
  Receive Date: 20240511
  Receipt Date: 20240511
  Transmission Date: 20240716
  Serious: Yes (Hospitalization)
  Sender: FDA-Public Use
  Company Number: DE-002147023-NVSC2021DE034547

PATIENT
  Sex: Female

DRUGS (28)
  1. ADALIMUMAB [Suspect]
     Active Substance: ADALIMUMAB\ISOPROPYL ALCOHOL
     Indication: Rheumatoid arthritis
     Dosage: UNK
     Route: 065
  2. ADALIMUMAB [Suspect]
     Active Substance: ADALIMUMAB\ISOPROPYL ALCOHOL
     Dosage: 40 MILLIGRAM, FROM SEP/2019
     Route: 065
     Dates: start: 20190729, end: 201908
  3. ADALIMUMAB [Suspect]
     Active Substance: ADALIMUMAB\ISOPROPYL ALCOHOL
     Dosage: 40 MILLIGRAM
     Route: 065
     Dates: start: 20191002
  4. ADALIMUMAB [Suspect]
     Active Substance: ADALIMUMAB\ISOPROPYL ALCOHOL
     Dosage: 40 MILLIGRAM
     Route: 065
     Dates: start: 20210114
  5. ADALIMUMAB [Suspect]
     Active Substance: ADALIMUMAB\ISOPROPYL ALCOHOL
     Dosage: 40 MILLIGRAM
     Route: 065
     Dates: start: 20200220, end: 202004
  6. ADALIMUMAB [Suspect]
     Active Substance: ADALIMUMAB\ISOPROPYL ALCOHOL
     Dosage: 40 MILLIGRAM
     Route: 065
     Dates: start: 20230516
  7. ADALIMUMAB [Suspect]
     Active Substance: ADALIMUMAB\ISOPROPYL ALCOHOL
     Dosage: 40 MILLIGRAM
     Route: 065
     Dates: start: 20231016
  8. ADALIMUMAB [Suspect]
     Active Substance: ADALIMUMAB\ISOPROPYL ALCOHOL
     Dosage: 40 MILLIGRAM
     Route: 065
     Dates: start: 20211004
  9. ADALIMUMAB [Suspect]
     Active Substance: ADALIMUMAB\ISOPROPYL ALCOHOL
     Dosage: 40 MILLIGRAM
     Route: 065
     Dates: start: 20220601
  10. ADALIMUMAB [Suspect]
     Active Substance: ADALIMUMAB\ISOPROPYL ALCOHOL
     Dosage: 40 MILLIGRAM
     Route: 065
     Dates: start: 20221109
  11. ADALIMUMAB [Suspect]
     Active Substance: ADALIMUMAB\ISOPROPYL ALCOHOL
     Dosage: 40 MILLIGRAM
     Route: 065
     Dates: start: 20210415
  12. IDACIO [Suspect]
     Active Substance: ADALIMUMAB-AACF
     Indication: Product used for unknown indication
     Dosage: 40 MILLIGRAM, FROM OCT/2020
     Route: 065
     Dates: start: 20210118
  13. IDACIO [Suspect]
     Active Substance: ADALIMUMAB-AACF
     Dosage: 40 MILLIGRAM
     Route: 065
     Dates: start: 20220707
  14. IDACIO [Suspect]
     Active Substance: ADALIMUMAB-AACF
     Dosage: UNK
     Route: 065
  15. IDACIO [Suspect]
     Active Substance: ADALIMUMAB-AACF
     Dosage: 40 MILLIGRAM
     Route: 065
     Dates: start: 20210630
  16. IDACIO [Suspect]
     Active Substance: ADALIMUMAB-AACF
     Dosage: 40 MILLIGRAM
     Route: 065
     Dates: start: 20230620
  17. IDACIO [Suspect]
     Active Substance: ADALIMUMAB-AACF
     Dosage: 40 MILLIGRAM
     Route: 065
     Dates: start: 20221207
  18. IDACIO [Suspect]
     Active Substance: ADALIMUMAB-AACF
     Dosage: 40 MILLIGRAM
     Route: 065
     Dates: start: 20211221
  19. METHOTREXATE [Suspect]
     Active Substance: METHOTREXATE
     Indication: Product used for unknown indication
     Dosage: UNK, (15 UNK FROM 09.2019)
     Route: 065
     Dates: start: 20191002, end: 202001
  20. METHOTREXATE [Suspect]
     Active Substance: METHOTREXATE
     Dosage: UNK, (10 UNK)
     Route: 065
     Dates: start: 20221207
  21. METHOTREXATE [Suspect]
     Active Substance: METHOTREXATE
     Dosage: UNK, (15 UNK)
     Route: 065
     Dates: start: 20200610
  22. METHOTREXATE [Suspect]
     Active Substance: METHOTREXATE
     Dosage: UNK, (10 UNK)
     Route: 065
     Dates: start: 20220707
  23. METHOTREXATE [Suspect]
     Active Substance: METHOTREXATE
     Dosage: UNK, (12.5 UNK)
     Route: 065
     Dates: start: 20211221
  24. METHOTREXATE [Suspect]
     Active Substance: METHOTREXATE
     Dosage: UNK, (7.5 UNK)
     Route: 065
     Dates: start: 20230620
  25. METHOTREXATE [Suspect]
     Active Substance: METHOTREXATE
     Dosage: UNK, (15 UNK)
     Route: 065
     Dates: start: 20210630
  26. METHOTREXATE [Suspect]
     Active Substance: METHOTREXATE
     Dosage: UNK, (15 UNK)
     Route: 065
     Dates: start: 20190729, end: 201908
  27. METHOTREXATE [Suspect]
     Active Substance: METHOTREXATE
     Dosage: UNK, (10 UNK FROM 10.2020)
     Route: 065
     Dates: start: 20210118
  28. METHOTREXATE [Suspect]
     Active Substance: METHOTREXATE
     Dosage: UNK, (15 UNK)
     Route: 065
     Dates: start: 20200220, end: 202004

REACTIONS (8)
  - Uterine leiomyoma [Unknown]
  - Uterine leiomyoma [Unknown]
  - Uterine polyp [Unknown]
  - Gastrointestinal infection [Recovered/Resolved]
  - Arthropod bite [Recovered/Resolved]
  - Influenza like illness [Recovered/Resolved]
  - Gastrointestinal infection [Recovered/Resolved]
  - Gastrointestinal infection [Recovered/Resolved]

NARRATIVE: CASE EVENT DATE: 20200315
